FAERS Safety Report 5394111-4 (Version None)
Quarter: 2007Q3

REPORT INFORMATION
  Report Type: 
  Country: None (occurrence: None)
  Receive Date: 20070720
  Receipt Date: 20070720
  Transmission Date: 20080115
  Serious: Yes (Hospitalization)
  Sender: FDA-Public Use
  Company Number: None

PATIENT
  Sex: Male
  Weight: 111.2 kg

DRUGS (2)
  1. RITUXIMAB (MOAB C2B8 ANTI CD20, CHINERIC)(687451) [Suspect]
     Dosage: 863 MG
  2. RITUXIMAB (MOAB C2B8 ANTI CD20, CHIMERIC) [Suspect]

REACTIONS (1)
  - PULMONARY EMBOLISM [None]
